FAERS Safety Report 5525423-9 (Version None)
Quarter: 2007Q4

REPORT INFORMATION
  Report Type: 
  Country: None (occurrence: None)
  Receive Date: 20071120
  Receipt Date: 20071112
  Transmission Date: 20080405
  Serious: Yes (Other)
  Sender: FDA-Public Use
  Company Number: 07H-163-0313460-00

PATIENT
  Age: 49 Year
  Sex: Male
  Weight: 100 kg

DRUGS (2)
  1. MORPHINE SULFATE [Suspect]
     Indication: PAIN MANAGEMENT
     Dosage: 0.2 ML, ONCE, EPIDURAL; 0.5 ML/H, PCEA
     Route: 008
  2. 0.016% BUPIVACAINE (BUPIVACAINE) [Concomitant]

REACTIONS (1)
  - PRIAPISM [None]
